FAERS Safety Report 6302465-7 (Version None)
Quarter: 2009Q3

REPORT INFORMATION
  Report Type: 
  Country: None (occurrence: None)
  Receive Date: 20090810
  Receipt Date: 20090805
  Transmission Date: 20100115
  Serious: Yes (Death)
  Sender: FDA-Public Use
  Company Number: AT-JNJFOC-20090800980

PATIENT
  Sex: Female

DRUGS (5)
  1. RISPERDAL CONSTA [Suspect]
     Route: 030
  2. RISPERDAL CONSTA [Suspect]
     Indication: SCHIZOPHRENIA, PARANOID TYPE
     Route: 030
  3. GABAPENTIN [Concomitant]
     Route: 065
  4. ZYPREXA [Concomitant]
     Route: 065
  5. ALL OTHER THERAPEUTIC PRODUCTS [Concomitant]
     Route: 065

REACTIONS (6)
  - ABDOMINAL PAIN LOWER [None]
  - DIARRHOEA [None]
  - HALLUCINATION [None]
  - MEGACOLON [None]
  - MULTI-ORGAN FAILURE [None]
  - SEPTIC SHOCK [None]
